FAERS Safety Report 14402289 (Version 2)
Quarter: 2018Q1

REPORT INFORMATION
  Report Type: Spontaneous
  Country: GR (occurrence: GR)
  Receive Date: 20180117
  Receipt Date: 20180315
  Transmission Date: 20180509
  Serious: Yes (Life-Threatening, Hospitalization)
  Sender: FDA-Public Use
  Company Number: GR-MYLANLABS-2018M1003908

PATIENT
  Age: 67 Year
  Sex: Female

DRUGS (3)
  1. METHYLENE BLUE. [Interacting]
     Active Substance: METHYLENE BLUE
     Indication: DIAGNOSTIC PROCEDURE
  2. ESCITALOPRAM [Suspect]
     Active Substance: ESCITALOPRAM OXALATE
     Indication: DEPRESSION
     Dosage: UNK
  3. METHYLENE BLUE. [Interacting]
     Active Substance: METHYLENE BLUE
     Indication: SURGERY
     Dosage: 5 MG/KG, UNK
     Route: 042

REACTIONS (15)
  - Agitation [Not Recovered/Not Resolved]
  - Delayed recovery from anaesthesia [Unknown]
  - Muscle rigidity [Unknown]
  - Hyperpyrexia [Unknown]
  - Mental status changes [Unknown]
  - Disorientation [Not Recovered/Not Resolved]
  - Anxiety [Not Recovered/Not Resolved]
  - Psychomotor hyperactivity [Unknown]
  - Mydriasis [Unknown]
  - Hyperreflexia [Recovered/Resolved]
  - Serotonin syndrome [Recovered/Resolved]
  - Fear [Not Recovered/Not Resolved]
  - Clonus [Recovered/Resolved]
  - Confusional state [Not Recovered/Not Resolved]
  - Drug interaction [Unknown]
